FAERS Safety Report 5474055-X (Version None)
Quarter: 2007Q4

REPORT INFORMATION
  Report Type: 
  Country: None (occurrence: None)
  Receive Date: 20071002
  Receipt Date: 20070925
  Transmission Date: 20080405
  Serious: Yes (Other)
  Sender: FDA-Public Use
  Company Number: PHEH2007US05453

PATIENT
  Age: 55 Year
  Sex: Female
  Weight: 69.841 kg

DRUGS (15)
  1. ZELNORM [Suspect]
     Indication: IMPAIRED GASTRIC EMPTYING
     Dosage: 2 MG, BID
     Route: 048
     Dates: start: 20050812, end: 20060601
  2. ESKALITH [Concomitant]
     Indication: BIPOLAR I DISORDER
  3. REGULAR INSULIN [Concomitant]
     Indication: DIABETES MELLITUS
  4. INSULIN HUMALOG MIX [Concomitant]
     Indication: DIABETES MELLITUS
     Dosage: 26 UNITS AM/15 UNITS HS
  5. VIVELLE-DOT [Concomitant]
  6. PARLODEL [Concomitant]
     Dosage: 2.5 MG, QHS
  7. NEURONTIN [Concomitant]
     Dosage: 300 MG, TID
  8. REGLAN [Concomitant]
     Indication: IMPAIRED GASTRIC EMPTYING
     Dosage: 10 MG, QD
  9. LEVSIN [Concomitant]
  10. LEXAPRO [Concomitant]
     Dosage: 2 MG, UNK
  11. ASPIRIN [Concomitant]
     Dosage: 325 MG, UNK
  12. LOPID [Concomitant]
     Dosage: 600 MG, BID
  13. PRIMIDONE [Concomitant]
     Dosage: 2 MG, QD
  14. ZOLOFT [Concomitant]
     Dosage: 1/2 100 MG QD
  15. FLORINEF [Concomitant]

REACTIONS (16)
  - ARTHRALGIA [None]
  - BLOOD ALKALINE PHOSPHATASE INCREASED [None]
  - BLOOD CALCIUM INCREASED [None]
  - BLOOD GLUCOSE INCREASED [None]
  - BLOOD TRIGLYCERIDES INCREASED [None]
  - BLOOD UREA INCREASED [None]
  - CHEST PAIN [None]
  - DEPRESSION [None]
  - DIZZINESS [None]
  - DYSPNOEA [None]
  - FALL [None]
  - HYPERCALCAEMIA [None]
  - HYPERCHOLESTEROLAEMIA [None]
  - HYPOTHYROIDISM [None]
  - ORTHOSTATIC HYPOTENSION [None]
  - STOMACH DISCOMFORT [None]
